FAERS Safety Report 20524871 (Version 1)
Quarter: 2022Q1

REPORT INFORMATION
  Report Type: Spontaneous
  Country: US (occurrence: US)
  Receive Date: 20220228
  Receipt Date: 20220228
  Transmission Date: 20220423
  Serious: No
  Sender: FDA-Public Use
  Company Number: US-SA-SAC20220221000635

PATIENT
  Age: 53 Year
  Sex: Male

DRUGS (2)
  1. DUPIXENT [Suspect]
     Active Substance: DUPILUMAB
     Indication: Illness
     Dosage: 300 MG QOW
     Route: 058
     Dates: start: 202111
  2. COVID-19 VACCINE [Concomitant]
     Indication: Immunisation

REACTIONS (3)
  - Pyrexia [Unknown]
  - Vomiting [Unknown]
  - Product use in unapproved indication [Unknown]
